FAERS Safety Report 18426547 (Version 3)
Quarter: 2021Q1

REPORT INFORMATION
  Report Type: Spontaneous
  Country: US (occurrence: US)
  Receive Date: 20201026
  Receipt Date: 20210107
  Transmission Date: 20210419
  Serious: Yes (Disabling, Other)
  Sender: FDA-Public Use
  Company Number: US-PFIZER INC-2020410996

PATIENT
  Age: 66 Year
  Sex: Female
  Weight: 68.04 kg

DRUGS (11)
  1. PREDNISONE ACETATE [Concomitant]
     Active Substance: PREDNISONE ACETATE
     Indication: CATARACT
     Dosage: 1 DROP, 4X/DAY [1% PLACE ONE DROP FOUR TIMES DAILY TO LEFT EYE]
     Route: 047
     Dates: start: 20201015
  2. PREMARIN [Suspect]
     Active Substance: ESTROGENS, CONJUGATED
     Indication: MENOPAUSAL SYMPTOMS
     Dosage: 0.625 MG/G, WEEKLY (0.625 MG/GRAM INSERTED VAGINALLY ONCE WEEKLY)
     Route: 067
     Dates: start: 201201, end: 202009
  3. WELLBUTRIN [Concomitant]
     Active Substance: BUPROPION HYDROCHLORIDE
     Indication: ANXIETY
  4. ZOLOFT [Concomitant]
     Active Substance: SERTRALINE HYDROCHLORIDE
     Indication: DEPRESSION
     Dosage: 100 MG, DAILY
     Dates: start: 20120802
  5. BACTROBAN [Concomitant]
     Active Substance: MUPIROCIN\MUPIROCIN CALCIUM
     Indication: CATARACT
     Dosage: UNK UNK, 4X/DAY [APPLY 2% TO LEFT EYE FOUR TIMES DAILY]
     Route: 047
     Dates: start: 20201015
  6. MOXIFLOXACIN. [Concomitant]
     Active Substance: MOXIFLOXACIN
     Indication: CATARACT
     Dosage: 1 DROP, 4X/DAY [0.5% ONE DROP IN LEFT EYE FOUR TIMES DAILY]
     Route: 047
     Dates: start: 20201015
  7. SEROQUEL [Concomitant]
     Active Substance: QUETIAPINE FUMARATE
     Indication: DEPRESSION
     Dosage: 300 MG, DAILY (300 MG DAILY)
     Dates: start: 20120802
  8. ZANAFLEX [Concomitant]
     Active Substance: TIZANIDINE HYDROCHLORIDE
     Indication: RESTLESS LEGS SYNDROME
     Dosage: 2 MG, 3X/DAY (2MG TABLET EVERY 8 HOURS)
     Dates: start: 20120802
  9. PREMARIN [Suspect]
     Active Substance: ESTROGENS, CONJUGATED
     Dosage: 0.5 G, WEEKLY (INSERT 0.5 GRAM APPLICATOR FULL VAGINALLY WEEKLY)
     Route: 067
  10. WELLBUTRIN [Concomitant]
     Active Substance: BUPROPION HYDROCHLORIDE
     Indication: DEPRESSION
     Dosage: 300 MG, 1X/DAY
     Dates: start: 20120802
  11. WELLBUTRIN [Concomitant]
     Active Substance: BUPROPION HYDROCHLORIDE
     Indication: AFFECTIVE DISORDER

REACTIONS (6)
  - Off label use [Unknown]
  - Memory impairment [Unknown]
  - Hot flush [Unknown]
  - Eye disorder [Unknown]
  - Abnormal sensation in eye [Recovering/Resolving]
  - Cataract [Recovering/Resolving]

NARRATIVE: CASE EVENT DATE: 201201
